FAERS Safety Report 25475016 (Version 1)
Quarter: 2025Q2

REPORT INFORMATION
  Report Type: Other
  Country: AU (occurrence: AU)
  Receive Date: 20250624
  Receipt Date: 20250624
  Transmission Date: 20250717
  Serious: Yes (Death, Life-Threatening, Other)
  Sender: BRECKENRIDGE PHARMACEUTICAL, INC.
  Company Number: AU-Breckenridge Pharmaceutical, Inc.-2179291

PATIENT
  Age: 50 Year
  Sex: Male
  Weight: 89 kg

DRUGS (2)
  1. AMITRIPTYLINE [Suspect]
     Active Substance: AMITRIPTYLINE
  2. OXYCODONE [Interacting]
     Active Substance: OXYCODONE

REACTIONS (5)
  - Pulmonary embolism [Fatal]
  - Completed suicide [Fatal]
  - Death [Fatal]
  - Deep vein thrombosis [Fatal]
  - Toxicity to various agents [Fatal]
